FAERS Safety Report 19762929 (Version 3)
Quarter: 2022Q1

REPORT INFORMATION
  Report Type: Other
  Country: DE (occurrence: None)
  Receive Date: 20210830
  Receipt Date: 20220215
  Transmission Date: 20220423
  Serious: Yes (Hospitalization, Other)
  Sender: FDA-Public Use
  Company Number: DE-ROCHE-2891410

PATIENT
  Age: 52 Year
  Sex: Male

DRUGS (5)
  1. OCREVUS [Suspect]
     Active Substance: OCRELIZUMAB
     Indication: Secondary progressive multiple sclerosis
     Route: 042
     Dates: start: 20210629
  2. GABAPENTIN [Concomitant]
     Active Substance: GABAPENTIN
  3. BACLOFEN [Concomitant]
     Active Substance: BACLOFEN
  4. AMLODIPINE [Concomitant]
     Active Substance: AMLODIPINE BESYLATE
  5. BUDESONIDE [Concomitant]
     Active Substance: BUDESONIDE

REACTIONS (7)
  - Off label use [Unknown]
  - Body temperature increased [Recovered/Resolved]
  - Inflammation [Recovered/Resolved]
  - Fatigue [Recovered/Resolved]
  - Listless [Recovered/Resolved]
  - Pneumonitis [Not Recovered/Not Resolved]
  - Drug ineffective [Unknown]

NARRATIVE: CASE EVENT DATE: 20210801
